FAERS Safety Report 7174252-1 (Version None)
Quarter: 2010Q4

REPORT INFORMATION
  Report Type: 
  Country: None (occurrence: None)
  Receive Date: 20101202
  Receipt Date: 20101125
  Transmission Date: 20110411
  Serious: Yes (Hospitalization)
  Sender: FDA-Public Use
  Company Number: 2010SP061973

PATIENT
  Age: 68 Year
  Sex: Male

DRUGS (2)
  1. REBETOL [Suspect]
     Indication: HEPATITIS C
     Dosage: PO
     Route: 048
     Dates: start: 20100810, end: 20101104
  2. FERON (INTERFERON) [Suspect]
     Indication: HEPATITIS C
     Dosage: 6 MIU;QD;IV
     Route: 042
     Dates: start: 20100810, end: 20101104

REACTIONS (2)
  - PLEURAL EFFUSION [None]
  - PYOTHORAX [None]
